FAERS Safety Report 16366506 (Version 2)
Quarter: 2022Q1

REPORT INFORMATION
  Report Type: Spontaneous
  Country: GB (occurrence: GB)
  Receive Date: 20190529
  Receipt Date: 20220310
  Transmission Date: 20220424
  Serious: Yes (Other)
  Sender: FDA-Public Use
  Company Number: GB-PFIZER INC-19708

PATIENT
  Sex: Male

DRUGS (6)
  1. METHOTREXATE SODIUM [Suspect]
     Active Substance: METHOTREXATE SODIUM
     Dosage: 15 MG, FREQ: WEEKLY
     Route: 048
     Dates: start: 20061013, end: 20080501
  2. ENBREL [Suspect]
     Active Substance: ETANERCEPT
     Dosage: 50 MG, FREQ: WEEKLY
     Route: 058
     Dates: start: 20070425, end: 20080501
  3. DICLOFENAC [Suspect]
     Active Substance: DICLOFENAC
     Dosage: 50 MG, FREQ: QD
     Route: 048
     Dates: start: 20051001
  4. FOLIC ACID [Suspect]
     Active Substance: FOLIC ACID
     Dosage: 5 MG, FREQ: QD
     Route: 048
     Dates: start: 20061013, end: 20080501
  5. OMEPRAZOLE [Suspect]
     Active Substance: OMEPRAZOLE
     Dosage: 10 MG, FREQ: QD
     Route: 048
     Dates: start: 20070320
  6. SULFASALAZINE [Suspect]
     Active Substance: SULFASALAZINE
     Dosage: 1.5 MG, FREQ: BID
     Route: 048
     Dates: start: 20010801, end: 20071001

REACTIONS (1)
  - Tonsil cancer [Not Recovered/Not Resolved]
